FAERS Safety Report 5902202-1 (Version None)
Quarter: 2008Q3

REPORT INFORMATION
  Report Type: 
  Country: None (occurrence: None)
  Receive Date: 20080929
  Receipt Date: 20080915
  Transmission Date: 20090109
  Serious: Yes (Hospitalization, Other)
  Sender: FDA-Public Use
  Company Number: US-ELI_LILLY_AND_COMPANY-US200809006169

PATIENT
  Sex: Female
  Weight: 87.982 kg

DRUGS (15)
  1. BYETTA [Suspect]
     Indication: TYPE 2 DIABETES MELLITUS
     Dosage: 5 UG, UNKNOWN
     Route: 065
     Dates: start: 20080501
  2. BYETTA [Suspect]
     Dosage: 5 UG, 2/D
     Route: 058
     Dates: start: 20080720, end: 20080802
  3. BYETTA [Suspect]
     Dosage: 5 UG, UNKNOWN
     Route: 058
     Dates: start: 20080901, end: 20080913
  4. FORTAMET [Concomitant]
     Indication: DIABETES MELLITUS
     Dosage: 500 MG, EACH MORNING
     Route: 065
  5. FORTAMET [Concomitant]
     Dosage: 2000 MG, EACH EVENING
     Route: 065
  6. LISINOPRIL [Concomitant]
     Indication: HYPERTENSION
     Dosage: 5 MG, 2/D
     Route: 065
     Dates: start: 20080101
  7. CLIMARA PRO [Concomitant]
     Indication: MENOPAUSE
     Dosage: 10 MG, UNKNOWN
     Route: 062
     Dates: start: 20040101
  8. SIMVASTATIN [Concomitant]
     Indication: DYSLIPIDAEMIA
     Dosage: 10 MG, DAILY (1/D)
     Route: 065
     Dates: start: 20010101
  9. CLARINEX [Concomitant]
     Indication: RHINITIS ALLERGIC
     Dosage: 5 MG, DAILY (1/D)
     Route: 065
     Dates: start: 20020101
  10. RHINOCORT [Concomitant]
     Indication: RHINITIS ALLERGIC
     Dosage: UNK, UNKNOWN
     Route: 055
  11. ASPIRIN [Concomitant]
     Indication: PROPHYLAXIS
     Dosage: 81 MG, DAILY (1/D)
     Route: 065
     Dates: end: 20080915
  12. LEVOTHYROXINE SODIUM [Concomitant]
     Indication: HYPOTHYROIDISM
     Dosage: 25 UG, DAILY (1/D)
     Route: 065
     Dates: start: 20080101
  13. NEXIUM [Concomitant]
     Indication: GASTROOESOPHAGEAL REFLUX DISEASE
     Dosage: 40 MG, AS NEEDED
     Route: 065
  14. GLIMEPIRIDE [Concomitant]
     Indication: TYPE 2 DIABETES MELLITUS
     Dosage: 1 MG, EACH EVENING
     Route: 065
  15. PREVACID [Concomitant]
     Dosage: 30 MG, DAILY (1/D)
     Route: 065

REACTIONS (3)
  - ANAEMIA [None]
  - DIARRHOEA [None]
  - PANCREATITIS [None]
